FAERS Safety Report 6002726-5 (Version None)
Quarter: 2008Q4

REPORT INFORMATION
  Report Type: 
  Country: None (occurrence: None)
  Receive Date: 20081215
  Receipt Date: 20071113
  Transmission Date: 20090506
  Serious: No
  Sender: FDA-Public Use
  Company Number: US-AMGEN-KDL252036

PATIENT
  Sex: Female

DRUGS (1)
  1. ENBREL [Suspect]
     Indication: ANKYLOSING SPONDYLITIS
     Route: 058
     Dates: start: 20071108

REACTIONS (9)
  - BLOOD PRESSURE INCREASED [None]
  - CHILLS [None]
  - INFLUENZA [None]
  - INSOMNIA [None]
  - JOINT SWELLING [None]
  - LOWER RESPIRATORY TRACT INFECTION [None]
  - MALAISE [None]
  - NAUSEA [None]
  - PAIN [None]
